FAERS Safety Report 15155487 (Version 2)
Quarter: 2018Q3

REPORT INFORMATION
  Report Type: Report from Study
  Country: GB (occurrence: GB)
  Receive Date: 20180717
  Receipt Date: 20180723
  Transmission Date: 20181010
  Serious: Yes (Hospitalization, Other)
  Sender: FDA-Public Use
  Company Number: GB-TEVA-2018-GB-926829

PATIENT
  Age: 65 Year
  Sex: Male

DRUGS (4)
  1. SIRDUPLA [Suspect]
     Active Substance: FLUTICASONE PROPIONATE\SALMETEROL XINAFOATE
     Indication: ASTHMA
     Dosage: 1 DF, UNK
     Route: 065
  2. SALAZOPYRIN [Suspect]
     Active Substance: SULFASALAZINE
     Indication: BRONCHIECTASIS
     Dosage: 2 GRAM DAILY;
     Route: 065
  3. METHOTREXATE. [Suspect]
     Active Substance: METHOTREXATE
     Indication: ASTHMA
     Dosage: 25 MG, QWK
     Route: 065
  4. ABATACEPT [Suspect]
     Active Substance: ABATACEPT
     Indication: RHEUMATOID ARTHRITIS
     Dosage: 125 MG, QWK
     Route: 058
     Dates: start: 20141029

REACTIONS (2)
  - Pneumonia [Recovering/Resolving]
  - Lower respiratory tract infection [Recovering/Resolving]

NARRATIVE: CASE EVENT DATE: 20161206
